FAERS Safety Report 10242686 (Version 1)
Quarter: 2014Q2

REPORT INFORMATION
  Report Type: Report from Study
  Country: CH (occurrence: CH)
  Receive Date: 20140617
  Receipt Date: 20140617
  Transmission Date: 20141212
  Serious: Yes (Disabling)
  Sender: FDA-Public Use
  Company Number: CH-TEVA-487359ISR

PATIENT
  Age: 56 Year
  Sex: Male

DRUGS (2)
  1. TRISENOX [Suspect]
     Indication: ACUTE MYELOID LEUKAEMIA
     Dosage: CONSOLIDATION PHASE
     Route: 042
     Dates: start: 20131106, end: 20131208
  2. IDARUBICIN [Suspect]
     Indication: ACUTE MYELOID LEUKAEMIA
     Dosage: 9 MG/M2 DAILY; CONSOLIDATION PHASE
     Route: 042
     Dates: start: 20131106, end: 20131108

REACTIONS (1)
  - VIIth nerve paralysis [Not Recovered/Not Resolved]
